FAERS Safety Report 22654158 (Version 1)
Quarter: 2023Q2

REPORT INFORMATION
  Report Type: Spontaneous
  Country: AU (occurrence: AU)
  Receive Date: 20230629
  Receipt Date: 20230629
  Transmission Date: 20230722
  Serious: Yes (Hospitalization)
  Sender: FDA-Public Use
  Company Number: AU-MYLANLABS-2023M1068208

PATIENT
  Age: 5 Decade
  Sex: Female

DRUGS (1)
  1. OLANZAPINE [Suspect]
     Active Substance: OLANZAPINE
     Indication: Korsakoff^s syndrome
     Dosage: 15 MILLIGRAM, QD
     Route: 048

REACTIONS (2)
  - Hyperglycaemia [Unknown]
  - Off label use [Unknown]
